FAERS Safety Report 7528441-4 (Version None)
Quarter: 2011Q2

REPORT INFORMATION
  Report Type: 
  Country: None (occurrence: None)
  Receive Date: 20110607
  Receipt Date: 20110531
  Transmission Date: 20111010
  Serious: Yes (Other)
  Sender: FDA-Public Use
  Company Number: US-SANOFI-AVENTIS-2011SA032954

PATIENT
  Age: 80 Year
  Sex: Female

DRUGS (4)
  1. SYNTHROID [Concomitant]
  2. PLAVIX [Suspect]
     Indication: STENT PLACEMENT
     Route: 048
     Dates: start: 20100101
  3. EVISTA [Suspect]
     Indication: OSTEOPOROSIS
     Route: 065
  4. CHOLESTEROL- AND TRIGLYCERIDE REDUCERS [Concomitant]

REACTIONS (3)
  - PAIN IN EXTREMITY [None]
  - THROMBOSIS [None]
  - NERVE COMPRESSION [None]
